FAERS Safety Report 23733647 (Version 5)
Quarter: 2024Q2

REPORT INFORMATION
  Report Type: Spontaneous
  Country: JP (occurrence: JP)
  Receive Date: 20240411
  Receipt Date: 20240626
  Transmission Date: 20240716
  Serious: Yes (Hospitalization, Other)
  Sender: FDA-Public Use
  Company Number: JP-TAKEDA-2024TJP003550

PATIENT
  Age: 6 Year
  Sex: Female
  Weight: 18 kg

DRUGS (9)
  1. ENTYVIO [Suspect]
     Active Substance: VEDOLIZUMAB
     Indication: Inflammatory bowel disease
     Dosage: 110 MILLIGRAM
     Route: 041
     Dates: start: 20240304
  2. AMINO ACIDS\CARBOHYDRATES\MINERALS\SOYBEAN OIL\VITAMINS [Concomitant]
     Active Substance: AMINO ACIDS\CARBOHYDRATES\MINERALS\SOYBEAN OIL\VITAMINS
     Indication: Inflammatory bowel disease
     Dosage: UNK UNK, TID
     Route: 048
     Dates: start: 20230405
  3. AMINO ACIDS\CARBOHYDRATES\MINERALS\SOYBEAN OIL\VITAMINS [Concomitant]
     Active Substance: AMINO ACIDS\CARBOHYDRATES\MINERALS\SOYBEAN OIL\VITAMINS
     Indication: Enteral nutrition
  4. IMURAN [Concomitant]
     Active Substance: AZATHIOPRINE
     Indication: Inflammatory bowel disease
     Dosage: 10 MILLIGRAM, QD
     Route: 048
     Dates: start: 20230619
  5. IMURAN [Concomitant]
     Active Substance: AZATHIOPRINE
     Indication: Immunosuppressant drug therapy
  6. TACROLIMUS [Concomitant]
     Active Substance: TACROLIMUS
     Indication: Immunosuppressant drug therapy
     Dosage: 2.5 MILLIGRAM, BID
     Route: 048
     Dates: start: 20230723
  7. SULFAMETHOXAZOLE\TRIMETHOPRIM [Concomitant]
     Active Substance: SULFAMETHOXAZOLE\TRIMETHOPRIM
     Indication: Infection prophylaxis
     Dosage: 4 DOSAGE FORM, 3/WEEK
     Route: 048
     Dates: start: 20231023
  8. LEVOCARNITINE [Concomitant]
     Active Substance: LEVOCARNITINE
     Dosage: 50 MILLIGRAM, BID
     Route: 048
     Dates: start: 20230602
  9. INCREMIN [Concomitant]
     Dosage: 6 MILLILITER, BID
     Route: 048

REACTIONS (3)
  - Inflammatory bowel disease [Unknown]
  - Product administered to patient of inappropriate age [Unknown]
  - Off label use [Unknown]

NARRATIVE: CASE EVENT DATE: 20240304
